FAERS Safety Report 4348059-4 (Version None)
Quarter: 2004Q2

REPORT INFORMATION
  Report Type: 
  Country: None (occurrence: None)
  Receive Date: 20040422
  Receipt Date: 20040413
  Transmission Date: 20050107
  Serious: Yes (Other)
  Sender: FDA-Public Use
  Company Number: 200416486BWH

PATIENT
  Age: 77 Year
  Sex: Male
  Weight: 72.5755 kg

DRUGS (13)
  1. LEVITRA [Suspect]
     Indication: ERECTILE DYSFUNCTION
     Dosage: ORAL
     Route: 048
     Dates: start: 20040101
  2. LEVITRA [Suspect]
     Indication: ERECTILE DYSFUNCTION
     Dosage: ORAL
     Route: 048
     Dates: start: 20040310
  3. PULMICORT [Concomitant]
  4. FORADIL [Concomitant]
  5. PROVENTIL [Concomitant]
  6. VALTREX [Concomitant]
  7. PROSED/DS [Concomitant]
  8. DETROL [Concomitant]
  9. TESTOSTERONE [Concomitant]
  10. MOBIC [Concomitant]
  11. RABEPRAZOLE SODIUM [Concomitant]
  12. SIMVASTATIN [Concomitant]
  13. ANTIHISTAMINE (NOS) [Concomitant]

REACTIONS (5)
  - BLOOD PRESSURE SYSTOLIC INCREASED [None]
  - BRONCHITIS [None]
  - EAR INFECTION [None]
  - HEADACHE [None]
  - NASOPHARYNGITIS [None]
